FAERS Safety Report 4790477-4 (Version None)
Quarter: 2005Q4

REPORT INFORMATION
  Report Type: 
  Country: None (occurrence: None)
  Receive Date: 20051005
  Receipt Date: 20050914
  Transmission Date: 20060501
  Serious: Yes (Other)
  Sender: FDA-Public Use
  Company Number: USA0509108143

PATIENT
  Age: 2 Year
  Sex: Male

DRUGS (1)
  1. CYMBALTA [Suspect]
     Dosage: 90 MG
     Dates: start: 20050914, end: 20050914

REACTIONS (3)
  - ACCIDENTAL EXPOSURE [None]
  - HYPERHIDROSIS [None]
  - MYDRIASIS [None]
